FAERS Safety Report 8800765 (Version 2)
Quarter: 2015Q2

REPORT INFORMATION
  Report Type: Report from Study
  Country: US (occurrence: US)
  Receive Date: 20120920
  Receipt Date: 20150623
  Transmission Date: 20150821
  Serious: Yes (Death)
  Sender: FDA-Public Use
  Company Number: US-ROCHE-1096896

PATIENT
  Sex: Female
  Weight: 37.7 kg

DRUGS (19)
  1. DULCOLAX (BISACODYL) [Concomitant]
     Active Substance: BISACODYL
  2. COUMADIN [Concomitant]
     Active Substance: WARFARIN SODIUM
     Route: 065
  3. PROCRIT [Concomitant]
     Active Substance: ERYTHROPOIETIN
     Route: 065
  4. ALOXI [Concomitant]
     Active Substance: PALONOSETRON HYDROCHLORIDE
  5. AVASTIN [Suspect]
     Active Substance: BEVACIZUMAB
     Indication: BREAST CANCER FEMALE
     Route: 042
     Dates: start: 20050817
  6. REGLAN [Concomitant]
     Active Substance: METOCLOPRAMIDE HYDROCHLORIDE
  7. MORPHINE [Concomitant]
     Active Substance: MORPHINE
     Route: 065
  8. PREVACID [Concomitant]
     Active Substance: LANSOPRAZOLE
     Route: 065
  9. CELEXA (UNITED STATES) [Concomitant]
     Route: 065
  10. ALDACTONE (UNITED STATES) [Concomitant]
     Route: 065
  11. AVASTIN [Suspect]
     Active Substance: BEVACIZUMAB
     Route: 042
     Dates: start: 20050831
  12. XELODA [Suspect]
     Active Substance: CAPECITABINE
     Indication: PRODUCT USED FOR UNKNOWN INDICATION
     Route: 065
     Dates: start: 2003
  13. TAXOTERE [Concomitant]
     Active Substance: DOCETAXEL
  14. DOXIL [Concomitant]
     Active Substance: DOXORUBICIN HYDROCHLORIDE
  15. COREG [Concomitant]
     Active Substance: CARVEDILOL
     Route: 065
  16. LISINOPRIL. [Concomitant]
     Active Substance: LISINOPRIL
     Route: 065
  17. GEMZAR [Concomitant]
     Active Substance: GEMCITABINE HYDROCHLORIDE
  18. LASIX [Concomitant]
     Active Substance: FUROSEMIDE
     Route: 065
  19. ZOMETA [Concomitant]
     Active Substance: ZOLEDRONIC ACID
     Route: 065

REACTIONS (13)
  - Vomiting [Unknown]
  - Ataxia [Unknown]
  - Nausea [Unknown]
  - Off label use [Unknown]
  - Food intolerance [Recovered/Resolved]
  - Pain [Unknown]
  - Orthopnoea [Unknown]
  - Fatigue [Unknown]
  - Quality of life decreased [Unknown]
  - Endometrial adenocarcinoma [Unknown]
  - Death [Fatal]
  - Diarrhoea [Unknown]
  - Constipation [Unknown]
